FAERS Safety Report 7968262-1 (Version None)
Quarter: 2011Q4

REPORT INFORMATION
  Report Type: 
  Country: None (occurrence: None)
  Receive Date: 20111209
  Receipt Date: 20111206
  Transmission Date: 20120403
  Serious: Yes (Death, Other)
  Sender: FDA-Public Use
  Company Number: PHHY2011BR107219

PATIENT
  Sex: Male

DRUGS (1)
  1. EXFORGE [Suspect]
     Indication: HYPERTENSION
     Dosage: 1 DF (160 VALS AND 5 MG AMLO), DAILY

REACTIONS (4)
  - METASTATIC NEOPLASM [None]
  - METASTASES TO LUNG [None]
  - METASTASES TO LIVER [None]
  - RECTAL CANCER [None]
